FAERS Safety Report 4542018-4 (Version None)
Quarter: 2004Q4

REPORT INFORMATION
  Report Type: 
  Country: None (occurrence: None)
  Receive Date: 20041227
  Receipt Date: 20041210
  Transmission Date: 20050328
  Serious: No
  Sender: FDA-Public Use
  Company Number: K200401893

PATIENT
  Age: 50 Year
  Sex: Female

DRUGS (5)
  1. ESTRADIOL VALERATE [Suspect]
     Indication: OVARIAN FAILURE POSTOPERATIVE
     Dosage: 40 MG, QD, INTRAMUSCULAR
     Route: 030
  2. ESTRACE [Suspect]
     Indication: MENOPAUSE
     Dosage: 2 MG, QD,
  3. PREMARIN [Suspect]
     Indication: MENOPAUSAL SYMPTOMS
  4. PROVERA [Suspect]
     Indication: MENOPAUSAL SYMPTOMS
     Dosage: 2.5 MG, QD
  5. ESTRATEST H.S. [Suspect]
     Indication: MENOPAUSAL SYMPTOMS

REACTIONS (5)
  - BREAST CANCER STAGE IV [None]
  - HEPATIC NEOPLASM MALIGNANT [None]
  - LUNG NEOPLASM [None]
  - OESTROGEN RECEPTOR ASSAY POSITIVE [None]
  - PROGESTERONE RECEPTOR ASSAY POSITIVE [None]
